FAERS Safety Report 13447276 (Version 1)
Quarter: 2017Q2

REPORT INFORMATION
  Report Type: Spontaneous
  Country: US (occurrence: US)
  Receive Date: 20170414
  Receipt Date: 20170414
  Transmission Date: 20170830
  Serious: Yes (Other)
  Sender: FDA-Public Use
  Company Number: None

PATIENT
  Age: 24 Year
  Sex: Female
  Weight: 59.47 kg

DRUGS (1)
  1. DESVENLAFAXINE 100MG TABS ALTAVIS PHARM [Suspect]
     Active Substance: DESVENLAFAXINE

REACTIONS (4)
  - Product substitution issue [None]
  - Suicidal ideation [None]
  - Insomnia [None]
  - Tremor [None]

NARRATIVE: CASE EVENT DATE: 20170323
